FAERS Safety Report 13936665 (Version 1)
Quarter: 2017Q3

REPORT INFORMATION
  Report Type: Spontaneous
  Country: US (occurrence: US)
  Receive Date: 20170905
  Receipt Date: 20170905
  Transmission Date: 20171127
  Serious: Yes (Disabling, Other)
  Sender: FDA-Public Use
  Company Number: US-ELI_LILLY_AND_COMPANY-US201708009796

PATIENT
  Age: 66 Year
  Sex: Male

DRUGS (5)
  1. MORPHINE SULPHATE [Concomitant]
     Active Substance: MORPHINE SULFATE
  2. PROZAC [Suspect]
     Active Substance: FLUOXETINE HYDROCHLORIDE
     Indication: MAJOR DEPRESSION
  3. XANAX [Concomitant]
     Active Substance: ALPRAZOLAM
  4. OXYCODONE [Concomitant]
     Active Substance: OXYCODONE
  5. PROZAC [Suspect]
     Active Substance: FLUOXETINE HYDROCHLORIDE
     Indication: ANXIETY
     Dosage: UNK UNK, UNKNOWN
     Route: 065
     Dates: start: 2000

REACTIONS (36)
  - Muscular weakness [Unknown]
  - Flushing [Unknown]
  - Feeling cold [Unknown]
  - Nausea [Unknown]
  - Pyrexia [Unknown]
  - Mental impairment [Unknown]
  - Back injury [Unknown]
  - Atrial fibrillation [Unknown]
  - Chills [Unknown]
  - Mania [Unknown]
  - Confusional state [Unknown]
  - Diabetes mellitus [Unknown]
  - Asthenia [Unknown]
  - Spinal fracture [Unknown]
  - Blood pressure decreased [Unknown]
  - Heart rate irregular [Unknown]
  - Abdominal pain upper [Unknown]
  - Burning sensation [Unknown]
  - Blood catecholamines decreased [Unknown]
  - Social anxiety disorder [Unknown]
  - Road traffic accident [Unknown]
  - Blood pressure fluctuation [Unknown]
  - Vitamin B12 deficiency [Recovered/Resolved]
  - Blood sodium decreased [Unknown]
  - Lip swelling [Unknown]
  - Dysphagia [Unknown]
  - Finger deformity [Unknown]
  - Paralysis [Unknown]
  - Somnolence [Unknown]
  - Tremor [Unknown]
  - Fibromyalgia [Unknown]
  - Drug withdrawal syndrome [Unknown]
  - Scar pain [Unknown]
  - Concussion [Unknown]
  - Dizziness [Unknown]
  - Fatigue [Unknown]

NARRATIVE: CASE EVENT DATE: 2000
